FAERS Safety Report 19453400 (Version 15)
Quarter: 2023Q1

REPORT INFORMATION
  Report Type: Spontaneous
  Country: US (occurrence: US)
  Receive Date: 20210623
  Receipt Date: 20230317
  Transmission Date: 20230418
  Serious: Yes (Hospitalization, Other)
  Sender: FDA-Public Use
  Company Number: US-PFIZER INC-2015094287

PATIENT
  Age: 81 Year
  Sex: Female
  Weight: 49.9 kg

DRUGS (11)
  1. PREMPRO [Suspect]
     Active Substance: ESTROGENS, CONJUGATED\MEDROXYPROGESTERONE ACETATE
     Indication: Muscle spasms
     Dosage: UNK (0.03/0.05)
     Dates: start: 1964
  2. PREMPRO [Suspect]
     Active Substance: ESTROGENS, CONJUGATED\MEDROXYPROGESTERONE ACETATE
     Indication: Contraception
     Dosage: 1 DF, DAILY
     Route: 048
  3. PREMPRO [Suspect]
     Active Substance: ESTROGENS, CONJUGATED\MEDROXYPROGESTERONE ACETATE
     Dosage: (0.3 MG- 1.5 MG), 2X/WEEK
     Route: 048
  4. PREMPRO [Suspect]
     Active Substance: ESTROGENS, CONJUGATED\MEDROXYPROGESTERONE ACETATE
     Dosage: (0.3 MG- 1.5 MG), 3X/WEEK
     Route: 048
  5. PREMPRO [Suspect]
     Active Substance: ESTROGENS, CONJUGATED\MEDROXYPROGESTERONE ACETATE
     Dosage: UNK (0.0305)
  6. PREMPRO [Suspect]
     Active Substance: ESTROGENS, CONJUGATED\MEDROXYPROGESTERONE ACETATE
     Dosage: UNK UNK, WEEKLY(2 OR 3 PILLS A WEEK)
  7. PREMPRO [Suspect]
     Active Substance: ESTROGENS, CONJUGATED\MEDROXYPROGESTERONE ACETATE
     Dosage: 0.3/1.5 (TABLET, THREE TIMES A WEEK)
  8. TYLENOL [Concomitant]
     Active Substance: ACETAMINOPHEN
     Indication: Pain
     Dosage: UNK, AS NEEDED
  9. ADVIL [Concomitant]
     Active Substance: IBUPROFEN
     Dosage: UNK, AS NEEDED
  10. CHONDROITIN [Concomitant]
     Active Substance: CHONDROITIN
     Dosage: UNK
  11. GLUCOSAMINE [Concomitant]
     Active Substance: GLUCOSAMINE
     Dosage: UNK

REACTIONS (29)
  - Joint injury [Unknown]
  - Stress fracture [Unknown]
  - Foot fracture [Unknown]
  - Drug effective for unapproved indication [Unknown]
  - Pain in extremity [Unknown]
  - Gait disturbance [Unknown]
  - Body height decreased [Unknown]
  - Musculoskeletal disorder [Unknown]
  - Arthritis [Unknown]
  - Hypertension [Unknown]
  - Infection [Unknown]
  - Mouth injury [Unknown]
  - Tongue injury [Unknown]
  - Lip injury [Unknown]
  - Pharyngeal disorder [Unknown]
  - Somnolence [Unknown]
  - Migraine [Unknown]
  - Pain [Unknown]
  - Stress [Unknown]
  - Headache [Not Recovered/Not Resolved]
  - Back disorder [Unknown]
  - Dizziness [Unknown]
  - Chest pain [Unknown]
  - Wrong strength [Unknown]
  - Tension [Unknown]
  - Blood pressure abnormal [Unknown]
  - Product prescribing error [Unknown]
  - Off label use [Unknown]
  - Intentional product misuse [Unknown]

NARRATIVE: CASE EVENT DATE: 20210825
